FAERS Safety Report 22791281 (Version 2)
Quarter: 2023Q4

REPORT INFORMATION
  Report Type: Spontaneous
  Country: US (occurrence: US)
  Receive Date: 20230807
  Receipt Date: 20231012
  Transmission Date: 20240110
  Serious: Yes (Hospitalization)
  Sender: FDA-Public Use
  Company Number: US-BEIGENE-BGN-2023-007861

PATIENT

DRUGS (1)
  1. BRUKINSA [Suspect]
     Active Substance: ZANUBRUTINIB
     Indication: Chronic lymphocytic leukaemia
     Dosage: 160 MILLIGRAM, Q12H
     Route: 048
     Dates: start: 20230424, end: 20230506

REACTIONS (13)
  - Pleural effusion [Not Recovered/Not Resolved]
  - Pneumothorax [Not Recovered/Not Resolved]
  - Pneumonia [Not Recovered/Not Resolved]
  - Chest pain [Not Recovered/Not Resolved]
  - Oral pain [Unknown]
  - Anorectal discomfort [Unknown]
  - Burning sensation [Unknown]
  - Pain in extremity [Unknown]
  - Paraesthesia [Unknown]
  - Fatigue [Unknown]
  - Pain [Unknown]
  - Haematoma [Unknown]
  - Haemoglobin decreased [Unknown]

NARRATIVE: CASE EVENT DATE: 20230426
